FAERS Safety Report 18252832 (Version 1)
Quarter: 2020Q3

REPORT INFORMATION
  Report Type: Spontaneous
  Country: IT (occurrence: IT)
  Receive Date: 20200910
  Receipt Date: 20200910
  Transmission Date: 20201103
  Serious: Yes (Other)
  Sender: FDA-Public Use
  Company Number: IT-SA-2020SA242165

PATIENT

DRUGS (2)
  1. OXALIPLATIN. [Suspect]
     Active Substance: OXALIPLATIN
     Indication: ADENOCARCINOMA OF COLON
     Dosage: 125 MG, QCY
     Route: 042
     Dates: start: 20200703, end: 20200717
  2. OXALIPLATIN. [Suspect]
     Active Substance: OXALIPLATIN
     Dosage: 125 MG, QCY
     Route: 042
     Dates: start: 20200703, end: 20200717

REACTIONS (6)
  - Dysgeusia [Recovered/Resolved]
  - Feeling cold [Recovered/Resolved]
  - Infusion related reaction [Recovered/Resolved]
  - Vomiting [Recovered/Resolved]
  - Dyspnoea [Recovered/Resolved]
  - Oxygen saturation decreased [Recovered/Resolved]

NARRATIVE: CASE EVENT DATE: 20200717
